FAERS Safety Report 6667564-9 (Version None)
Quarter: 2010Q2

REPORT INFORMATION
  Report Type: 
  Country: None (occurrence: None)
  Receive Date: 20100401
  Receipt Date: 20100317
  Transmission Date: 20101027
  Serious: Yes (Hospitalization)
  Sender: FDA-Public Use
  Company Number: 009335

PATIENT
  Sex: Female

DRUGS (13)
  1. CERTOLIZUMAB PEGOL (CDP870) [Suspect]
     Indication: RHEUMATOID ARTHRITIS
     Dosage: (SUBCUTANEOUS)
     Route: 058
     Dates: start: 20091218
  2. ATORVASTATIN CALCIUM [Concomitant]
  3. TACROLIMUS [Concomitant]
  4. PREDNISOLONE [Concomitant]
  5. OLMESARTAN MEDOXOMIL [Concomitant]
  6. ALENDRONATE SODIUM [Concomitant]
  7. AMLODIPINE BESILATE [Concomitant]
  8. LANSOPRAZOLE [Concomitant]
  9. ALFACALCIDOL [Concomitant]
  10. LOXOPROFEN SODIUM [Concomitant]
  11. ISONIAZID [Concomitant]
  12. CLARITHROMYCIN [Concomitant]
  13. CROMOLYN SODIUM [Concomitant]

REACTIONS (2)
  - PNEUMONIA PNEUMOCOCCAL [None]
  - PNEUMONIA PRIMARY ATYPICAL [None]
